FAERS Safety Report 4498448-2 (Version None)
Quarter: 2004Q4

REPORT INFORMATION
  Report Type: 
  Country: None (occurrence: None)
  Receive Date: 20041105
  Receipt Date: 20041029
  Transmission Date: 20050328
  Serious: Yes (Life-Threatening)
  Sender: FDA-Public Use
  Company Number: 2004CG02204

PATIENT
  Age: 45 Year
  Sex: Female

DRUGS (3)
  1. DIPRIVAN [Suspect]
     Indication: GENERAL ANAESTHESIA
     Dosage: 200 MG ONCE IV
     Route: 042
     Dates: start: 20041005, end: 20041005
  2. ESMERON [Suspect]
     Indication: GENERAL ANAESTHESIA
     Dosage: 75 MG ONCE IV
     Route: 042
     Dates: start: 20041005, end: 20041005
  3. SUFENTA [Suspect]
     Indication: GENERAL ANAESTHESIA
     Dosage: 10 UG ONCE IV
     Route: 042
     Dates: start: 20041005, end: 20041005

REACTIONS (1)
  - SHOCK [None]
